FAERS Safety Report 24241036 (Version 1)
Quarter: 2024Q3

REPORT INFORMATION
  Report Type: Spontaneous
  Country: JP (occurrence: JP)
  Receive Date: 20240823
  Receipt Date: 20240823
  Transmission Date: 20241016
  Serious: Yes (Hospitalization)
  Sender: BRISTOL MYERS SQUIBB
  Company Number: JP-BRISTOL-MYERS SQUIBB COMPANY-2024-001830

PATIENT
  Age: 78 Year
  Sex: Male
  Weight: 64.3 kg

DRUGS (18)
  1. REVLIMID [Suspect]
     Active Substance: LENALIDOMIDE
     Indication: Follicular lymphoma
     Dates: start: 20230412, end: 20230418
  2. REVLIMID [Suspect]
     Active Substance: LENALIDOMIDE
     Dates: start: 20230526, end: 20230608
  3. REVLIMID [Suspect]
     Active Substance: LENALIDOMIDE
     Dates: start: 20230616, end: 20230706
  4. REVLIMID [Suspect]
     Active Substance: LENALIDOMIDE
     Dates: start: 20230714, end: 20230803
  5. REVLIMID [Suspect]
     Active Substance: LENALIDOMIDE
     Dates: start: 20230818, end: 20230907
  6. REVLIMID [Suspect]
     Active Substance: LENALIDOMIDE
     Dates: start: 20230922, end: 20231012
  7. RITUXIMAB [Suspect]
     Active Substance: RITUXIMAB
     Indication: Follicular lymphoma
     Dates: start: 20230412, end: 20230412
  8. RITUXIMAB [Suspect]
     Active Substance: RITUXIMAB
     Dates: start: 20230526, end: 20230526
  9. RITUXIMAB [Suspect]
     Active Substance: RITUXIMAB
     Dates: start: 20230602, end: 20230602
  10. RITUXIMAB [Suspect]
     Active Substance: RITUXIMAB
     Dates: start: 20230609, end: 20230609
  11. RITUXIMAB [Suspect]
     Active Substance: RITUXIMAB
     Dates: start: 20230616, end: 20230616
  12. RITUXIMAB [Suspect]
     Active Substance: RITUXIMAB
     Dates: start: 20230714, end: 20230714
  13. RITUXIMAB [Suspect]
     Active Substance: RITUXIMAB
     Dates: start: 20230818, end: 20230818
  14. RITUXIMAB [Suspect]
     Active Substance: RITUXIMAB
     Dates: start: 20230922, end: 20230922
  15. FEBUXOSTAT [Concomitant]
     Active Substance: FEBUXOSTAT
     Indication: Prophylaxis
     Route: 048
     Dates: start: 20230412
  16. SULFAMETHOXAZOLE\TRIMETHOPRIM [Concomitant]
     Active Substance: SULFAMETHOXAZOLE\TRIMETHOPRIM
     Indication: Prophylaxis
     Route: 048
     Dates: start: 20230412
  17. CALONAL [Concomitant]
     Active Substance: ACETAMINOPHEN
     Indication: Prophylaxis
     Route: 048
     Dates: start: 20230412
  18. DIPHENHYDRAMINE [Concomitant]
     Active Substance: DIPHENHYDRAMINE
     Indication: Prophylaxis
     Route: 048
     Dates: start: 20230412

REACTIONS (3)
  - Rash [Recovered/Resolved]
  - Crowned dens syndrome [Recovered/Resolved]
  - C-reactive protein increased [Recovered/Resolved]
